FAERS Safety Report 12114890 (Version 2)
Quarter: 2016Q1

REPORT INFORMATION
  Report Type: Spontaneous
  Country: BR (occurrence: BR)
  Receive Date: 20160225
  Receipt Date: 20160303
  Transmission Date: 20160526
  Serious: Yes (Other)
  Sender: FDA-Public Use
  Company Number: BR-PFIZER INC-2016041910

PATIENT
  Age: 17 Year
  Sex: Female
  Weight: 70 kg

DRUGS (3)
  1. GEODON [Suspect]
     Active Substance: ZIPRASIDONE HYDROCHLORIDE\ZIPRASIDONE MESYLATE
     Indication: DEPRESSION
     Dosage: 40 MG, 1X/DAY IN THE MORNING
     Route: 048
     Dates: start: 20160119, end: 201601
  2. GEODON [Suspect]
     Active Substance: ZIPRASIDONE HYDROCHLORIDE\ZIPRASIDONE MESYLATE
     Indication: LACTATION DISORDER
     Dosage: 40 MG, 2X/DAY
     Route: 048
     Dates: start: 201601, end: 2016
  3. EGIDE [Concomitant]
     Indication: DRUG WITHDRAWAL SYNDROME
     Dosage: 1 DF (CAPSULE OR TABLET), 1X/DAY
     Dates: start: 201510

REACTIONS (3)
  - Sensory disturbance [Recovered/Resolved]
  - Hypoaesthesia [Recovered/Resolved]
  - Drug administered to patient of inappropriate age [Recovered/Resolved]

NARRATIVE: CASE EVENT DATE: 201601
